FAERS Safety Report 9279442 (Version 2)
Quarter: 2013Q2

REPORT INFORMATION
  Report Type: Spontaneous
  Country: US (occurrence: US)
  Receive Date: 20130508
  Receipt Date: 20130515
  Transmission Date: 20140414
  Serious: No
  Sender: FDA-Public Use
  Company Number: US-GILEAD-2013-0074515

PATIENT
  Sex: Female

DRUGS (3)
  1. LETAIRIS [Suspect]
     Indication: PULMONARY ARTERIAL HYPERTENSION
     Dosage: 10 MG, QD
     Dates: start: 20111118
  2. TYVASO [Concomitant]
  3. ADCIRCA [Concomitant]

REACTIONS (2)
  - Chronic obstructive pulmonary disease [Unknown]
  - Oxygen saturation decreased [Unknown]
